FAERS Safety Report 9672110 (Version 1)
Quarter: 2013Q4

REPORT INFORMATION
  Report Type: Report from Study
  Country: US (occurrence: US)
  Receive Date: 20131106
  Receipt Date: 20131106
  Transmission Date: 20140711
  Serious: Yes (Other)
  Sender: FDA-Public Use
  Company Number: US-BAYER-2013-134336

PATIENT
  Age: 67 Year
  Sex: Female

DRUGS (6)
  1. BETASERON [Suspect]
     Indication: SECONDARY PROGRESSIVE MULTIPLE SCLEROSIS
     Dosage: 8 MIU, QOD
     Route: 058
     Dates: start: 20031106
  2. PRIMIDONE [Concomitant]
     Indication: TREMOR
  3. NEURONTIN [Concomitant]
     Indication: TREMOR
  4. BACLOFEN [Concomitant]
  5. AMITRIPTYLINE [Concomitant]
  6. CLONIDINE [Concomitant]

REACTIONS (2)
  - Cardiac failure congestive [Not Recovered/Not Resolved]
  - Constipation [Not Recovered/Not Resolved]
